FAERS Safety Report 4787992-6 (Version None)
Quarter: 2005Q3

REPORT INFORMATION
  Report Type: 
  Country: None (occurrence: None)
  Receive Date: 20050914
  Receipt Date: 20050621
  Transmission Date: 20060218
  Serious: Yes (Other)
  Sender: FDA-Public Use
  Company Number: 408634

PATIENT
  Sex: Male

DRUGS (1)
  1. BONIVA [Suspect]
     Dosage: 1 PER MONTH

REACTIONS (1)
  - DYSURIA [None]
